FAERS Safety Report 8480573 (Version 6)
Quarter: 2012Q4

REPORT INFORMATION
  Report Type: 
  Country: US (occurrence: US)
  Receive Date: 20120328
  Receipt Date: 20120830
  Transmission Date: 20130627
  Serious: Yes (Hospitalization, Disabling, Other)
  Sender: FDA-Public Use
  Company Number: US-009507513-1203USA03298

PATIENT

DRUGS (13)
  1. FOSAMAX [Suspect]
     Indication: BONE LOSS
     Dosage: 70 mg, qw
     Route: 048
     Dates: start: 1999, end: 200707
  2. FOSAMAX [Suspect]
     Indication: BONE LOSS
     Dosage: 70/2800 mg, UNK
     Route: 048
     Dates: end: 20100317
  3. ASCORBIC ACID [Concomitant]
     Dosage: 500 mg, UNK
     Route: 048
  4. CENTRUM SILVER [Concomitant]
     Route: 048
  5. OMEGA-3 MARINE TRIGLYCERIDES [Concomitant]
     Dosage: 1000 mg, UNK
     Route: 048
  6. CALCIUM (UNSPECIFIED) (+) PHYTONADIONE (+) VITAMIN D (UNSPECIFIED) [Concomitant]
     Dosage: 500 mg, UNK
     Route: 048
  7. CIMETIDINE [Concomitant]
     Dosage: 40 mg, UNK
     Route: 048
  8. DETROL [Concomitant]
     Dosage: 4 mg, UNK
     Route: 048
  9. ACTOS [Concomitant]
     Indication: DIABETES MELLITUS
     Dosage: 45 mg, UNK
     Dates: start: 2002, end: 201203
  10. AMITRIPTYLIN [Concomitant]
     Indication: STRESS
     Dosage: UNK
     Dates: start: 1982
  11. METFORMIN [Concomitant]
     Indication: DIABETES MELLITUS
     Dosage: 1000 mg, UNK
     Dates: start: 1997
  12. PRANDIN (DEFLAZACORT) [Concomitant]
     Indication: DIABETES MELLITUS
     Dosage: UNK
     Dates: start: 2002
  13. NASONEX [Concomitant]
     Dosage: 2 DF, qd
     Route: 045

REACTIONS (29)
  - Open reduction of fracture [Unknown]
  - Osteoporosis [Not Recovered/Not Resolved]
  - Stress fracture [Not Recovered/Not Resolved]
  - Femur fracture [Not Recovered/Not Resolved]
  - Low turnover osteopathy [Not Recovered/Not Resolved]
  - Skin infection [Unknown]
  - Cellulitis [Recovering/Resolving]
  - Polyp [Unknown]
  - Diverticulum [Unknown]
  - Haemorrhoids [Unknown]
  - Scoliosis [Unknown]
  - Eczema [Unknown]
  - Eczema nummular [Unknown]
  - Dermatitis contact [Recovered/Resolved]
  - Stasis dermatitis [Unknown]
  - Varicose vein [Unknown]
  - Decreased appetite [Unknown]
  - Excoriation [Recovering/Resolving]
  - Cataract [Unknown]
  - Tooth extraction [Unknown]
  - Fracture [Unknown]
  - Post-traumatic headache [Unknown]
  - Excoriation [Unknown]
  - Fall [Unknown]
  - Bladder disorder [Unknown]
  - Blood cholesterol increased [Unknown]
  - Hypertension [Unknown]
  - Hypersensitivity [Unknown]
  - Arthralgia [Unknown]
